FAERS Safety Report 10955552 (Version 1)
Quarter: 2015Q1

REPORT INFORMATION
  Report Type: Report from Study
  Country: US (occurrence: US)
  Receive Date: 20150326
  Receipt Date: 20150326
  Transmission Date: 20150721
  Serious: Yes (Hospitalization)
  Sender: FDA-Public Use
  Company Number: US-BIOGENIDEC-2015BI037549

PATIENT
  Sex: Male

DRUGS (1)
  1. AVONEX [Suspect]
     Active Substance: INTERFERON BETA-1A
     Indication: MULTIPLE SCLEROSIS
     Route: 030
     Dates: start: 20070611

REACTIONS (3)
  - Injection site haemorrhage [Recovered/Resolved]
  - Urinary retention [Recovered/Resolved]
  - Loss of control of legs [Recovered/Resolved]

NARRATIVE: CASE EVENT DATE: 2015
